FAERS Safety Report 4614009-6 (Version None)
Quarter: 2005Q1

REPORT INFORMATION
  Report Type: 
  Country: None (occurrence: None)
  Receive Date: 20050321
  Receipt Date: 20050315
  Transmission Date: 20050727
  Serious: Yes (Other)
  Sender: FDA-Public Use
  Company Number: FR-BRISTOL-MYERS SQUIBB COMPANY-12900650

PATIENT
  Sex: Female

DRUGS (14)
  1. PERFALGAN IV [Suspect]
     Route: 042
  2. PRO-DAFALGAN PWDR FOR INJ [Suspect]
     Route: 042
  3. AMIKACIN [Suspect]
  4. AUGMENTIN '125' [Suspect]
  5. CLAMOXYL [Suspect]
  6. ROVAMYCINE [Suspect]
  7. CLAFORAN [Suspect]
  8. VANCOMYCIN HCL [Suspect]
  9. ROCEPHIN [Suspect]
  10. CIPROFLOXACIN HCL [Suspect]
  11. SOLU-MEDROL [Suspect]
  12. ATROVENT [Suspect]
  13. VENTOLIN [Suspect]
  14. BRICANYL [Suspect]

REACTIONS (1)
  - DERMATITIS CONTACT [None]
